FAERS Safety Report 6371232-0 (Version None)
Quarter: 2009Q3

REPORT INFORMATION
  Report Type: 
  Country: None (occurrence: None)
  Receive Date: 20090923
  Receipt Date: 20071128
  Transmission Date: 20100115
  Serious: No
  Sender: FDA-Public Use
  Company Number: US-ASTRAZENECA-2007UW02009

PATIENT
  Age: 26 Year
  Sex: Male
  Weight: 113.4 kg

DRUGS (10)
  1. SEROQUEL [Suspect]
     Indication: BIPOLAR DISORDER
     Dosage: TOTAL DAILY DOSE 200 MG
     Route: 048
     Dates: start: 19970101
  2. SEROQUEL [Suspect]
     Indication: SCHIZOPHRENIA
     Dosage: TOTAL DAILY DOSE 200 MG
     Route: 048
     Dates: start: 19970101
  3. SEROQUEL [Suspect]
     Dosage: 200 MG TO 600 MG
     Route: 048
     Dates: start: 20051212
  4. SEROQUEL [Suspect]
     Dosage: 200 MG TO 600 MG
     Route: 048
     Dates: start: 20051212
  5. RISPERDAL [Concomitant]
     Dates: start: 20040101
  6. ZYPREXA [Concomitant]
  7. SYMBYAX [Concomitant]
  8. HALDOL [Concomitant]
  9. DEPAKOTE [Concomitant]
  10. CELEXA [Concomitant]
     Dates: start: 20051212

REACTIONS (14)
  - CHEST PAIN [None]
  - CONSTIPATION [None]
  - DIARRHOEA [None]
  - EPISTAXIS [None]
  - GASTROOESOPHAGEAL REFLUX DISEASE [None]
  - HAEMATOCHEZIA [None]
  - HEADACHE [None]
  - HYPERGLYCAEMIA [None]
  - HYPERTENSION [None]
  - LIMB INJURY [None]
  - PAIN IN EXTREMITY [None]
  - RENAL PAIN [None]
  - VISION BLURRED [None]
  - VOMITING [None]
